FAERS Safety Report 19269817 (Version 2)
Quarter: 2021Q2

REPORT INFORMATION
  Report Type: Spontaneous
  Country: IT (occurrence: IT)
  Receive Date: 20210518
  Receipt Date: 20210528
  Transmission Date: 20210717
  Serious: Yes (Death)
  Sender: FDA-Public Use
  Company Number: IT-ACCORD-225189

PATIENT
  Age: 73 Year
  Sex: Female

DRUGS (9)
  1. GEMCITABINE ACCORD [Suspect]
     Active Substance: GEMCITABINE HYDROCHLORIDE
     Indication: BLADDER NEOPLASM
     Route: 042
     Dates: start: 20210306, end: 20210306
  2. PLAVIX [Concomitant]
     Active Substance: CLOPIDOGREL BISULFATE
     Indication: PERIPHERAL ARTERIAL OCCLUSIVE DISEASE
  3. PERFALGAN [Concomitant]
     Active Substance: ACETAMINOPHEN
  4. IRON [Concomitant]
     Active Substance: IRON
  5. COMIRNATY [Suspect]
     Active Substance: TOZINAMERAN
     Indication: COVID-19 IMMUNISATION
     Route: 030
     Dates: start: 20210304, end: 20210304
  6. LAEVOLAC [Concomitant]
     Active Substance: LACTULOSE
  7. CARBOPLATIN SANDOZ GMBH [Suspect]
     Active Substance: CARBOPLATIN
     Indication: BLADDER NEOPLASM
     Route: 042
     Dates: start: 20210306, end: 20210306
  8. CLEXANE [Concomitant]
     Active Substance: ENOXAPARIN SODIUM
  9. PANTORC [Concomitant]
     Active Substance: PANTOPRAZOLE SODIUM

REACTIONS (4)
  - Loss of consciousness [Fatal]
  - Syncope [Fatal]
  - Pulmonary embolism [Fatal]
  - Abdominal pain upper [Fatal]

NARRATIVE: CASE EVENT DATE: 20210306
